FAERS Safety Report 12077871 (Version 2)
Quarter: 2016Q1

REPORT INFORMATION
  Report Type: Report from Study
  Country: BR (occurrence: BR)
  Receive Date: 20160215
  Receipt Date: 20160218
  Transmission Date: 20160526
  Serious: Yes (Death, Other)
  Sender: FDA-Public Use
  Company Number: PHHY2016BR019656

PATIENT
  Age: 81 Year
  Sex: Female
  Weight: 90 kg

DRUGS (7)
  1. DIOVAN [Suspect]
     Active Substance: VALSARTAN
     Indication: HYPERTENSION
     Dosage: 160 MG, QD (28 TABLETS FOR APPROXIMATELY 4 YEARS)
     Route: 048
  2. CELEBRA [Concomitant]
     Active Substance: CELECOXIB
     Indication: MULTIPLE SCLEROSIS
     Route: 048
  3. DIOSMIN [Concomitant]
     Active Substance: DIOSMIN
     Indication: MULTIPLE SCLEROSIS
     Dosage: 500 MG, QD
     Route: 048
     Dates: end: 201509
  4. DIPYRONE [Concomitant]
     Active Substance: DIPYRONE
     Indication: MULTIPLE SCLEROSIS
  5. AMYTRIL [Concomitant]
     Active Substance: AMITRIPTYLINE HYDROCHLORIDE
     Indication: SEDATIVE THERAPY
     Dosage: 1 DF, QD (FROM 3 YEARS AGO)
     Route: 048
     Dates: end: 201509
  6. SIMVASTATIN. [Concomitant]
     Active Substance: SIMVASTATIN
     Indication: BLOOD CHOLESTEROL INCREASED
     Dosage: 20 MG, QD
     Route: 048
     Dates: end: 201509
  7. DIPYRONE [Concomitant]
     Active Substance: DIPYRONE
     Indication: PAIN
     Dosage: 40 DRP, TID (FROM 18 YEARS AGO)
     Route: 048
     Dates: end: 201509

REACTIONS (8)
  - Insomnia [Recovering/Resolving]
  - Urinary tract infection [Recovering/Resolving]
  - Cardiac arrest [Fatal]
  - Cataract [Recovering/Resolving]
  - Cystitis [Recovering/Resolving]
  - Respiratory arrest [Fatal]
  - Quadriparesis [Unknown]
  - Dyspnoea [Unknown]

NARRATIVE: CASE EVENT DATE: 20150901
